FAERS Safety Report 7085563-2 (Version None)
Quarter: 2010Q4

REPORT INFORMATION
  Report Type: 
  Country: None (occurrence: None)
  Receive Date: 20101105
  Receipt Date: 20101026
  Transmission Date: 20110411
  Serious: Yes (Other)
  Sender: FDA-Public Use
  Company Number: US-JNJFOC-20101100290

PATIENT
  Age: 79 Year
  Sex: Female
  Weight: 72.58 kg

DRUGS (5)
  1. TYLENOL COLD MULTI-SYMPTOM DAYTIME RAPID RELEASE GELS [Suspect]
     Indication: NASOPHARYNGITIS
     Dosage: 1 ^CAPSULE AT 1500 AND A SECOND AT 1630
     Route: 048
  2. TYLENOL COLD MULTI-SYMPTOM NIGHTTIME RAPID RELEASE GELS [Suspect]
     Indication: NASOPHARYNGITIS
     Dosage: 1 ^CAPSULE^ AT 1500 AND A SECOND AT 1630
     Route: 048
  3. SIMVASTATIN [Concomitant]
     Indication: BLOOD CHOLESTEROL INCREASED
     Route: 065
  4. VITAMIN TAB [Concomitant]
     Indication: VITAMIN SUPPLEMENTATION
     Dosage: HAS TAKEN ^ALL OF HER LIFE^
     Route: 065
  5. FISH OILS [Concomitant]
     Indication: NUTRITIONAL SUPPORT
     Dosage: HAS TAKEN ^ALL OF HER LIFE^
     Route: 065

REACTIONS (3)
  - DYSPHONIA [None]
  - DYSPNOEA [None]
  - THROAT TIGHTNESS [None]
